FAERS Safety Report 23269839 (Version 1)
Quarter: 2023Q4

REPORT INFORMATION
  Report Type: Report from Study
  Country: US (occurrence: US)
  Receive Date: 20231207
  Receipt Date: 20231207
  Transmission Date: 20240110
  Serious: Yes (Other)
  Sender: FDA-Public Use
  Company Number: US-ABBVIE-5526320

PATIENT
  Age: 71 Year
  Sex: Male

DRUGS (2)
  1. HUMIRA [Suspect]
     Active Substance: ADALIMUMAB
     Indication: Colitis ulcerative
     Dosage: UNKNOWN
     Route: 058
     Dates: start: 201503, end: 201902
  2. PREDNISONE [Suspect]
     Active Substance: PREDNISONE
     Indication: Oropharyngeal pain
     Route: 065

REACTIONS (7)
  - Large intestinal haemorrhage [Not Recovered/Not Resolved]
  - Dysphagia [Not Recovered/Not Resolved]
  - Pharyngeal disorder [Unknown]
  - Immunodeficiency [Unknown]
  - Oropharyngeal pain [Unknown]
  - Auditory disorder [Not Recovered/Not Resolved]
  - Haematochezia [Not Recovered/Not Resolved]

NARRATIVE: CASE EVENT DATE: 20230901
